FAERS Safety Report 10249327 (Version 1)
Quarter: 2014Q2

REPORT INFORMATION
  Report Type: Spontaneous
  Country: US (occurrence: None)
  Receive Date: 20140619
  Receipt Date: 20140619
  Transmission Date: 20141212
  Serious: Yes (Other)
  Sender: FDA-Public Use
  Company Number: None

PATIENT
  Age: 39 Year
  Sex: Female
  Weight: 58.06 kg

DRUGS (4)
  1. CYMBALTA [Suspect]
     Indication: MAJOR DEPRESSION
     Dosage: 1 CAPSULE 60MG, ONCE DAILY, TAKEN BY MOUTH
     Route: 048
     Dates: start: 20140501, end: 20140614
  2. CYMBALTA [Suspect]
     Indication: MYALGIA
     Dosage: 1 CAPSULE 60MG, ONCE DAILY, TAKEN BY MOUTH
     Route: 048
     Dates: start: 20140501, end: 20140614
  3. CYMBALTA [Suspect]
     Indication: NEURALGIA
     Dosage: 1 CAPSULE 60MG, ONCE DAILY, TAKEN BY MOUTH
     Route: 048
     Dates: start: 20140501, end: 20140614
  4. CYMBALTA [Suspect]
     Indication: ARTHRALGIA
     Dosage: 1 CAPSULE 60MG, ONCE DAILY, TAKEN BY MOUTH
     Route: 048
     Dates: start: 20140501, end: 20140614

REACTIONS (13)
  - Increased tendency to bruise [None]
  - Bleeding time prolonged [None]
  - Sexual dysfunction [None]
  - Insomnia [None]
  - Drug withdrawal syndrome [None]
  - Impaired work ability [None]
  - Quality of life decreased [None]
  - Vertigo [None]
  - Fall [None]
  - Pain [None]
  - Irritability [None]
  - Gastrointestinal disorder [None]
  - Paraesthesia [None]
